FAERS Safety Report 24584868 (Version 1)
Quarter: 2024Q4

REPORT INFORMATION
  Report Type: Spontaneous
  Country: EU (occurrence: EU)
  Receive Date: 20241106
  Receipt Date: 20241106
  Transmission Date: 20250114
  Serious: Yes (Death)
  Sender: ETHYPHARM
  Company Number: None

PATIENT

DRUGS (2)
  1. BUPRENORPHINE HYDROCHLORIDE [Suspect]
     Active Substance: BUPRENORPHINE HYDROCHLORIDE
  2. ZOPICLONE [Suspect]
     Active Substance: ZOPICLONE

REACTIONS (1)
  - Death [Fatal]
